FAERS Safety Report 8830879 (Version 2)
Quarter: 2012Q4

REPORT INFORMATION
  Report Type: 
  Country: IL (occurrence: IL)
  Receive Date: 20121009
  Receipt Date: 20121023
  Transmission Date: 20130627
  Serious: Yes (Hospitalization, Other)
  Sender: FDA-Public Use
  Company Number: IL-RANBAXY-2012RR-60880

PATIENT
  Age: 28 Year
  Sex: Female

DRUGS (13)
  1. MORPHINE [Suspect]
     Indication: SPINAL ANAESTHESIA
     Dosage: 0.15 mg, UNK
     Route: 037
  2. BUPIVACAINE [Suspect]
     Indication: SPINAL ANAESTHESIA
     Dosage: 8 mg
     Route: 037
  3. MIDAZOLAM [Interacting]
     Indication: RESTLESSNESS
     Dosage: 1 mg, UNK
     Route: 042
  4. MIDAZOLAM [Interacting]
     Indication: ABDOMINAL PAIN
  5. MIDAZOLAM [Interacting]
     Indication: SEDATIVE THERAPY
  6. KETAMINE [Interacting]
     Indication: SEDATIVE THERAPY
     Dosage: 25 mg, UNK
     Route: 042
  7. KETAMINE [Interacting]
     Indication: RESTLESSNESS
  8. KETAMINE [Interacting]
     Indication: ABDOMINAL PAIN
  9. PROPOFOL [Interacting]
     Indication: SEDATIVE THERAPY
     Dosage: 100 mg, UNK
     Route: 042
  10. PROPOFOL [Interacting]
     Indication: RESTLESSNESS
  11. PROPOFOL [Interacting]
     Indication: ABDOMINAL PAIN
  12. CEFAZOLINE [Concomitant]
     Indication: ANTIBIOTIC PROPHYLAXIS
     Dosage: 1 g, UNK
     Route: 065
  13. OXYTOCIN [Concomitant]
     Indication: PRODUCT USED FOR UNKNOWN INDICATION
     Dosage: 10 units in 1000 mL of Ringer Lactate
     Route: 065

REACTIONS (2)
  - Myoclonus [Recovering/Resolving]
  - Drug interaction [Recovering/Resolving]
